FAERS Safety Report 24297384 (Version 1)
Quarter: 2024Q3

REPORT INFORMATION
  Report Type: Spontaneous
  Country: GB (occurrence: GB)
  Receive Date: 20240909
  Receipt Date: 20240909
  Transmission Date: 20241016
  Serious: No
  Sender: ALKEM
  Company Number: None

PATIENT
  Age: 37 Year
  Sex: Female
  Weight: 63 kg

DRUGS (8)
  1. PREGABALIN [Suspect]
     Active Substance: PREGABALIN
     Indication: Adverse drug reaction
     Dosage: UNK
     Route: 065
     Dates: start: 20240105, end: 20240107
  2. AMITRIPTYLINE HYDROCHLORIDE [Concomitant]
     Active Substance: AMITRIPTYLINE HYDROCHLORIDE
     Indication: Ill-defined disorder
     Dosage: UNK, HS (2-4 AT NIGHT)
     Route: 065
     Dates: start: 20240110
  3. DICLOFENAC SODIUM [Concomitant]
     Active Substance: DICLOFENAC\DICLOFENAC SODIUM
     Indication: Ill-defined disorder
     Dosage: UNK, TID (TAKE ONE 3 TIMES/DAY WITH FOOD)
     Route: 065
     Dates: start: 20240110
  4. DULOXETINE [Concomitant]
     Active Substance: DULOXETINE
     Indication: Ill-defined disorder
     Dosage: UNK, QD (1 EVERY DAY)
     Route: 065
     Dates: start: 20240110
  5. FERROUS FUMARATE [Concomitant]
     Active Substance: FERROUS FUMARATE
     Indication: Ill-defined disorder
     Dosage: 1 DOSAGE FORM, OD  (TAKE ONE TABLET ONCE A DAY ON AN EMPTY STOMACH)
     Route: 065
     Dates: start: 20230322
  6. LANSOPRAZOLE [Concomitant]
     Active Substance: LANSOPRAZOLE
     Indication: Ill-defined disorder
     Dosage: 1 DOSAGE FORM, OD (TAKE ONE CAPSULE ONCE A DAY TO HELP PREVENT IND)
     Route: 065
     Dates: start: 20240110
  7. Levest [Concomitant]
     Indication: Ill-defined disorder
     Dosage: UNK, QD (TAKE CONTINOUSLY ONE EVERY DAY, AFTER 3 PACKS T)
     Route: 065
     Dates: start: 20230329
  8. PREGABALIN [Concomitant]
     Active Substance: PREGABALIN
     Indication: Ill-defined disorder
     Dosage: 1 DOSAGE FORM, BID (TAKE ONE CAPSULE TWICE A DAY, INCREASING GRADUA)
     Route: 065
     Dates: start: 20240105

REACTIONS (1)
  - Paraesthesia oral [Recovered/Resolved]

NARRATIVE: CASE EVENT DATE: 20240106
